FAERS Safety Report 7070451-8 (Version None)
Quarter: 2010Q4

REPORT INFORMATION
  Report Type: 
  Country: None (occurrence: None)
  Receive Date: 20101028
  Receipt Date: 20101028
  Transmission Date: 20110411
  Serious: Yes (Other)
  Sender: FDA-Public Use
  Company Number: None

PATIENT
  Age: 79 Year
  Sex: Female

DRUGS (1)
  1. ALENDRONATE 70 MG [Suspect]
     Indication: OSTEOPENIA
     Dates: start: 20090804, end: 20100630

REACTIONS (1)
  - FEMUR FRACTURE [None]
